FAERS Safety Report 5872953-6 (Version None)
Quarter: 2008Q3

REPORT INFORMATION
  Report Type: 
  Country: None (occurrence: None)
  Receive Date: 20080905
  Receipt Date: 20080829
  Transmission Date: 20090109
  Serious: Yes (Life-Threatening)
  Sender: FDA-Public Use
  Company Number: PL-GENENTECH-264490

PATIENT
  Sex: Male
  Weight: 107 kg

DRUGS (21)
  1. BLINDED ANTI-CD40 [Suspect]
     Indication: DIFFUSE LARGE B-CELL LYMPHOMA RECURRENT
     Dosage: 200 MG, SINGLE
     Route: 042
     Dates: start: 20080619, end: 20080619
  2. BLINDED PLACEBO [Suspect]
     Indication: DIFFUSE LARGE B-CELL LYMPHOMA RECURRENT
     Dosage: 200 MG, SINGLE
     Route: 042
     Dates: start: 20080619, end: 20080619
  3. BLINDED ANTI-CD40 [Suspect]
     Dosage: 400 MG, SINGLE
     Route: 017
     Dates: start: 20080622, end: 20080622
  4. BLINDED PLACEBO [Suspect]
     Dosage: 400 MG, SINGLE
     Route: 017
     Dates: start: 20080622, end: 20080622
  5. BLINDED ANTI-CD40 [Suspect]
     Dosage: 800 MG, SINGLE
     Route: 042
     Dates: start: 20080627, end: 20080627
  6. BLINDED PLACEBO [Suspect]
     Dosage: 800 MG, SINGLE
     Route: 042
     Dates: start: 20080627, end: 20080627
  7. RITUXIMAB [Suspect]
     Indication: DIFFUSE LARGE B-CELL LYMPHOMA RECURRENT
     Dosage: 850 MG, Q3W
     Route: 042
     Dates: start: 20080618, end: 20080618
  8. ETOPOSIDE [Suspect]
     Indication: DIFFUSE LARGE B-CELL LYMPHOMA
     Dosage: 227 MG, Q3W
     Route: 042
     Dates: start: 20080620, end: 20080620
  9. ETOPOSIDE [Suspect]
     Dosage: 227 MG, Q3W
     Route: 042
     Dates: start: 20080621, end: 20080621
  10. ETOPOSIDE [Suspect]
     Dosage: 227 MG, Q3W
     Route: 042
     Dates: start: 20080622, end: 20080622
  11. CARBOPLATIN [Suspect]
     Indication: DIFFUSE LARGE B-CELL LYMPHOMA
     Dosage: 580 MG, Q3W
     Route: 042
     Dates: start: 20080621, end: 20080621
  12. IFOSFAMIDE [Suspect]
     Indication: DIFFUSE LARGE B-CELL LYMPHOMA
     Dosage: 11350 MG, Q3W
     Route: 042
     Dates: start: 20080621, end: 20080621
  13. TAMSULOSIN HCL [Concomitant]
     Indication: DRUG USE FOR UNKNOWN INDICATION
     Dosage: UNK
  14. BISOPROLOL FUMARATE [Concomitant]
     Indication: DRUG USE FOR UNKNOWN INDICATION
     Dosage: UNK
     Dates: start: 20050101
  15. SPIRONOLACTONE [Concomitant]
     Indication: DRUG USE FOR UNKNOWN INDICATION
     Dosage: UNK
     Dates: start: 20050101
  16. SODIUM CHLORIDE 0.9% [Concomitant]
     Indication: DRUG USE FOR UNKNOWN INDICATION
     Dosage: UNK
     Dates: start: 20080620
  17. ALLOPURINOL [Concomitant]
     Indication: DRUG USE FOR UNKNOWN INDICATION
     Dosage: UNK
     Dates: start: 20080620
  18. KETOCONAZOLE [Concomitant]
     Indication: DRUG USE FOR UNKNOWN INDICATION
     Dosage: UNK
     Dates: start: 20080621
  19. CIPROFLOXACIN [Concomitant]
     Indication: DRUG USE FOR UNKNOWN INDICATION
     Dosage: UNK
     Dates: start: 20080621
  20. CEFOPERAZONE SODIUM [Concomitant]
     Indication: DRUG USE FOR UNKNOWN INDICATION
     Dosage: UNK
     Dates: start: 20080621
  21. NEUPOGEN [Concomitant]
     Indication: DRUG USE FOR UNKNOWN INDICATION
     Dosage: UNK
     Dates: start: 20080619

REACTIONS (1)
  - CATHETER RELATED INFECTION [None]
